FAERS Safety Report 5364061-8 (Version None)
Quarter: 2007Q2

REPORT INFORMATION
  Report Type: 
  Country: None (occurrence: None)
  Receive Date: 20070620
  Receipt Date: 20070607
  Transmission Date: 20071010
  Serious: Yes (Other)
  Sender: FDA-Public Use
  Company Number: IE-ASTRAZENECA-2007GB01217

PATIENT
  Sex: Male

DRUGS (1)
  1. XYLOCAINE W/ EPINEPHRINE [Suspect]
     Route: 065

REACTIONS (2)
  - HYPERTHERMIA MALIGNANT [None]
  - MUSCLE TWITCHING [None]
